FAERS Safety Report 17951738 (Version 2)
Quarter: 2020Q2

REPORT INFORMATION
  Report Type: Spontaneous
  Country: IL (occurrence: IL)
  Receive Date: 20200626
  Receipt Date: 20200630
  Transmission Date: 20200714
  Serious: Yes (Hospitalization, Other)
  Sender: FDA-Public Use
  Company Number: IL-ROCHE-2630813

PATIENT
  Age: 54 Year
  Sex: Male
  Weight: 85 kg

DRUGS (8)
  1. XELODA [Suspect]
     Active Substance: CAPECITABINE
     Indication: RECTAL ADENOCARCINOMA
     Route: 065
     Dates: start: 201801
  2. XELODA [Suspect]
     Active Substance: CAPECITABINE
     Route: 065
     Dates: start: 201901
  3. OXALIPLATIN. [Suspect]
     Active Substance: OXALIPLATIN
     Indication: RECTAL ADENOCARCINOMA
     Dosage: XELOX
     Route: 065
     Dates: start: 201801
  4. AVASTIN [Suspect]
     Active Substance: BEVACIZUMAB
     Route: 065
     Dates: start: 201906, end: 201910
  5. XELODA [Suspect]
     Active Substance: CAPECITABINE
     Route: 065
     Dates: start: 201906, end: 201910
  6. XELODA [Suspect]
     Active Substance: CAPECITABINE
     Route: 065
     Dates: start: 2017
  7. AVASTIN [Suspect]
     Active Substance: BEVACIZUMAB
     Indication: RECTAL ADENOCARCINOMA
     Dosage: XELODA+ AVASTIN 3+3
     Route: 065
     Dates: start: 201901
  8. XELODA [Suspect]
     Active Substance: CAPECITABINE
     Route: 065
     Dates: start: 20200609

REACTIONS (3)
  - Small intestinal obstruction [Unknown]
  - Carcinoembryonic antigen increased [Recovered/Resolved]
  - Palmar-plantar erythrodysaesthesia syndrome [Recovering/Resolving]

NARRATIVE: CASE EVENT DATE: 201809
